FAERS Safety Report 8237705 (Version 6)
Quarter: 2012Q4

REPORT INFORMATION
  Report Type: Report from Study
  Country: DK (occurrence: DK)
  Receive Date: 20111109
  Receipt Date: 20121023
  Transmission Date: 20130627
  Serious: Yes (Hospitalization)
  Sender: FDA-Public Use
  Company Number: DK-PFIZER INC-2011269919

PATIENT
  Age: 64 Year
  Sex: Male
  Weight: 81 kg

DRUGS (33)
  1. DOXORUBICIN HCL [Suspect]
     Indication: DIFFUSE LARGE B-CELL LYMPHOMA
     Dosage: 100 mg, 1x/day
     Route: 042
     Dates: start: 20110426
  2. DOXORUBICIN HCL [Suspect]
     Dosage: 100 mg, 1x/day
     Route: 042
     Dates: start: 20110628
  3. DOXORUBICIN HCL [Suspect]
     Dosage: 100 mg, 1x/day
     Route: 042
     Dates: start: 20110803
  4. NEUPOGEN [Suspect]
     Indication: DIFFUSE LARGE B-CELL LYMPHOMA
     Dosage: 6 mg, UNK
     Route: 058
     Dates: start: 20110427
  5. NEUPOGEN [Suspect]
     Dosage: 6 mg, UNK
     Route: 058
     Dates: start: 20110629
  6. NEUPOGEN [Suspect]
     Dosage: 6 mg, UNK
     Route: 058
     Dates: start: 20110804
  7. RITUXIMAB [Suspect]
     Indication: DIFFUSE LARGE B-CELL LYMPHOMA
     Dosage: 750 mg, qd
     Route: 042
     Dates: start: 20110426
  8. RITUXIMAB [Suspect]
     Dosage: 765 mg, qd
     Route: 042
     Dates: start: 20110503
  9. RITUXIMAB [Suspect]
     Dosage: 750 mg, UNK
     Route: 042
     Dates: start: 20110628
  10. RITUXIMAB [Suspect]
     Dosage: 750 mg, 1x/day
     Route: 042
     Dates: start: 20110702
  11. RITUXIMAB [Suspect]
     Dosage: 750 mg, qd
     Route: 042
     Dates: start: 20110803
  12. PREDNISONE [Suspect]
     Indication: DIFFUSE LARGE B-CELL LYMPHOMA
     Dosage: 100 mg, qd
     Route: 048
     Dates: start: 20110426
  13. PREDNISONE [Suspect]
     Dosage: 100 mg, 1x/day
     Route: 048
     Dates: start: 20110803
  14. PREDNISONE [Suspect]
     Dosage: 100 mg, 1x/day
     Route: 048
     Dates: start: 20110628
  15. CYCLOPHOSPHAMIDE [Suspect]
     Indication: DIFFUSE LARGE B-CELL LYMPHOMA
     Dosage: 1500 mg, qd
     Route: 042
     Dates: start: 20110426
  16. CYCLOPHOSPHAMIDE [Suspect]
     Dosage: 1500 mg, 1x/day
     Route: 042
     Dates: start: 20110628
  17. CYCLOPHOSPHAMIDE [Suspect]
     Dosage: 1500 mg, 1x/day
     Route: 042
     Dates: start: 20110803
  18. VINCRISTINE [Suspect]
     Indication: DIFFUSE LARGE B-CELL LYMPHOMA
     Dosage: 2 mg, qd
     Route: 042
     Dates: start: 20110426
  19. VINCRISTINE [Suspect]
     Dosage: 2 mg, 1x/day
     Route: 042
     Dates: start: 20110628
  20. VINCRISTINE [Suspect]
     Dosage: 2 mg, 1x/day
     Route: 042
     Dates: start: 20110803
  21. LANSOPRAZOLE [Concomitant]
     Indication: PROPHYLAXIS
     Dosage: UNK
     Route: 048
     Dates: start: 2011
  22. AMLODIPINE [Concomitant]
     Indication: HYPERTENSION
     Dosage: UNK
     Route: 048
     Dates: start: 20110415
  23. ALLOPURINOL [Concomitant]
     Indication: PROPHYLAXIS
     Dosage: UNK
     Route: 048
     Dates: start: 20110412, end: 20110708
  24. MORPHINE [Concomitant]
     Indication: PAIN
     Dosage: 10 mg, UNK
     Route: 048
     Dates: start: 2011
  25. SULFAMETHOXAZOLE W/TRIMETHOPRIM [Concomitant]
     Indication: PROPHYLAXIS
     Dosage: 400 mg, UNK
     Route: 048
     Dates: start: 20110628
  26. ACICLODAN [Concomitant]
     Indication: PROPHYLAXIS
     Dosage: 400 mg, UNK
     Route: 048
     Dates: start: 20110412
  27. LACTULOSE [Concomitant]
     Indication: CONSTIPATION
     Dosage: 25 ml, UNK
     Route: 048
  28. MOVICOL [Concomitant]
     Indication: CONSTIPATION
  29. FURIX [Concomitant]
     Indication: POLYURIA
     Dosage: 40 mg, UNK
     Route: 048
  30. CLEXANE [Concomitant]
     Indication: PAIN
     Dosage: UNK
     Route: 058
     Dates: start: 20110826
  31. BRAN/FIG/SENNOSIDE A+B [Concomitant]
  32. CONTALGIN [Concomitant]
  33. ELECTROLYTES NOS/MACROGOL [Concomitant]

REACTIONS (6)
  - Pneumonia [Not Recovered/Not Resolved]
  - Febrile neutropenia [Not Recovered/Not Resolved]
  - Pyrexia [Not Recovered/Not Resolved]
  - Muscle rupture [Not Recovered/Not Resolved]
  - Pulmonary embolism [Recovered/Resolved with Sequelae]
  - Pyrexia [Recovered/Resolved]
